FAERS Safety Report 15166408 (Version 1)
Quarter: 2018Q3

REPORT INFORMATION
  Report Type: Spontaneous
  Country: US (occurrence: US)
  Receive Date: 20180621
  Receipt Date: 20180621
  Transmission Date: 20181010
  Serious: No
  Sender: FDA-Public Use
  Company Number: None

PATIENT
  Age: 19 Year
  Sex: Male
  Weight: 103 kg

DRUGS (5)
  1. DIPHENHYDRAMINE 25MG CAPSULE [Concomitant]
     Dates: start: 20180305, end: 20180309
  2. IBUPROFEN 400MG TABLET [Concomitant]
     Dates: start: 20180305, end: 20180310
  3. KETOROLAC 30MG IM INJECTION [Concomitant]
     Dates: start: 20180305, end: 20180305
  4. DEXAMETHASONE. [Suspect]
     Active Substance: DEXAMETHASONE
     Indication: IDIOPATHIC URTICARIA
     Route: 030
     Dates: start: 20180305, end: 20180305
  5. DEXAMETHASONE 4MG IM INJECTION [Concomitant]
     Dates: start: 20180305, end: 20180305

REACTIONS (2)
  - Treatment noncompliance [None]
  - Hiccups [None]

NARRATIVE: CASE EVENT DATE: 20180305
